FAERS Safety Report 11274516 (Version 1)
Quarter: 2015Q3

REPORT INFORMATION
  Report Type: Report from Study
  Country: US (occurrence: US)
  Receive Date: 20150715
  Receipt Date: 20150715
  Transmission Date: 20151125
  Serious: Yes (Death)
  Sender: FDA-Public Use
  Company Number: US-TAKEDA-2015TUS009128

PATIENT
  Sex: Female
  Weight: 57.6 kg

DRUGS (1)
  1. COLCHICINE. [Suspect]
     Active Substance: COLCHICINE
     Indication: PROPHYLAXIS
     Dosage: 0.6 MG, QD
     Route: 048
     Dates: start: 2011, end: 20150710

REACTIONS (3)
  - Fall [Unknown]
  - Enzyme abnormality [Fatal]
  - Head injury [Unknown]

NARRATIVE: CASE EVENT DATE: 2015
